FAERS Safety Report 8224535-9 (Version None)
Quarter: 2012Q1

REPORT INFORMATION
  Report Type: 
  Country: None (occurrence: None)
  Receive Date: 20120321
  Receipt Date: 20120315
  Transmission Date: 20120608
  Serious: No
  Sender: FDA-Public Use
  Company Number: US-PFIZER INC-2012068970

PATIENT
  Sex: Male

DRUGS (3)
  1. VIAGRA [Suspect]
     Indication: ERECTILE DYSFUNCTION
     Dosage: UNK, WEEKLY
     Route: 048
     Dates: start: 19960101
  2. VIAGRA [Suspect]
     Dosage: 100 MG, WEEKLY
     Route: 048
     Dates: start: 20120101
  3. VIAGRA [Suspect]
     Dosage: 100 MG HALF A TABLET
     Route: 048
     Dates: start: 20120101

REACTIONS (2)
  - DIZZINESS [None]
  - DRUG INEFFECTIVE [None]
